FAERS Safety Report 4767729-7 (Version None)
Quarter: 2005Q3

REPORT INFORMATION
  Report Type: 
  Country: None (occurrence: None)
  Receive Date: 20050912
  Receipt Date: 20050830
  Transmission Date: 20060218
  Serious: Yes (Death, Hospitalization)
  Sender: FDA-Public Use
  Company Number: 2005P1000246

PATIENT
  Age: 53 Year
  Sex: Female

DRUGS (10)
  1. NICARDIPINE HCL [Suspect]
     Dates: start: 19980615
  2. RO 50-3821 [Suspect]
     Dosage: 120 MCG; QM; SC
     Route: 058
     Dates: start: 20040728
  3. COZAAR [Suspect]
  4. ENOXAPARIN SODIUM [Concomitant]
  5. CALCITRIOL [Concomitant]
  6. SEVELAMER [Concomitant]
  7. CALCIUM CARBONATE [Concomitant]
  8. METOPROLOL [Concomitant]
  9. ACETYLSALICYLATE LYSINE [Concomitant]
  10. PRAVASTATIN [Concomitant]

REACTIONS (7)
  - DEHYDRATION [None]
  - ELECTROCARDIOGRAM REPOLARISATION ABNORMALITY [None]
  - INTESTINAL OBSTRUCTION [None]
  - ORTHOSTATIC HYPOTENSION [None]
  - PYREXIA [None]
  - SEPTIC SHOCK [None]
  - TROPONIN INCREASED [None]
